FAERS Safety Report 8032971-9 (Version None)
Quarter: 2012Q1

REPORT INFORMATION
  Report Type: 
  Country: None (occurrence: None)
  Receive Date: 20120110
  Receipt Date: 20120103
  Transmission Date: 20120608
  Serious: Yes (Hospitalization)
  Sender: FDA-Public Use
  Company Number: US-BAYER-2011-034300

PATIENT
  Age: 29 Year
  Sex: Female
  Weight: 127 kg

DRUGS (21)
  1. ALBUTEROL [Concomitant]
  2. HYDROCHLOROTHIAZIDE [Concomitant]
     Dosage: UNK
     Dates: start: 20070101, end: 20100101
  3. LEVAQUIN [Concomitant]
     Dosage: 750 MG, UNK
     Route: 048
     Dates: start: 20080717
  4. TANDEM F [Concomitant]
     Dosage: UNK
     Route: 048
     Dates: start: 20080728
  5. PROMETHAZINE [Concomitant]
     Dosage: 25 MG, UNK
     Route: 048
     Dates: start: 20080812
  6. OXYCODONE HCL [Concomitant]
     Dosage: UNK
     Route: 048
     Dates: start: 20080813
  7. MORPHINE [Concomitant]
     Indication: PAIN
  8. YASMIN [Suspect]
     Dosage: UNK
     Dates: start: 20080301, end: 20080601
  9. DICYCLOMINE [Concomitant]
     Dosage: 20 MG, UNK
     Route: 048
     Dates: start: 20080717
  10. OXYCODONE HCL AND ACETAMINOPHEN [Concomitant]
     Dosage: UNK
     Route: 048
     Dates: start: 20080717
  11. YAZ [Suspect]
     Indication: ORAL CONTRACEPTION
     Dosage: UNK
     Route: 048
     Dates: start: 20051201, end: 20060201
  12. JUNEL FE 1.5/30 [Concomitant]
     Dosage: UNK
     Route: 048
     Dates: start: 20080728
  13. TORADOL [Concomitant]
     Dosage: 30 MG, UNK
     Route: 042
  14. YAZ [Suspect]
     Dosage: UNK
     Route: 048
     Dates: start: 20080301, end: 20080601
  15. YASMIN [Suspect]
     Indication: ORAL CONTRACEPTION
     Dosage: UNK
     Route: 048
     Dates: start: 20051201, end: 20060201
  16. ZITHROMAX [Concomitant]
     Dosage: UNK
     Dates: start: 20080718
  17. IBUPROFEN [Concomitant]
  18. LISINOPRIL [Concomitant]
  19. PROVERA [Concomitant]
  20. IRON [FERROUS SULFATE] [Concomitant]
     Dosage: UNK UNK, QD
     Route: 048
  21. ONDASTERON [Concomitant]
     Dosage: 4 MG, UNK
     Route: 048

REACTIONS (3)
  - PAIN [None]
  - CHOLECYSTITIS ACUTE [None]
  - GALLBLADDER DISORDER [None]
